FAERS Safety Report 14951401 (Version 1)
Quarter: 2018Q2

REPORT INFORMATION
  Report Type: Spontaneous
  Country: US (occurrence: US)
  Receive Date: 20180530
  Receipt Date: 20180530
  Transmission Date: 20180711
  Serious: Yes (Other)
  Sender: FDA-Public Use
  Company Number: US-ROCHE-2129160

PATIENT
  Age: 39 Year
  Sex: Female

DRUGS (1)
  1. OCREVUS [Suspect]
     Active Substance: OCRELIZUMAB
     Indication: MULTIPLE SCLEROSIS
     Route: 042
     Dates: start: 2017

REACTIONS (7)
  - Depression [Unknown]
  - Confusional state [Unknown]
  - Sleep disorder [Unknown]
  - Fatigue [Unknown]
  - Pruritus [Unknown]
  - Agitation [Unknown]
  - Lethargy [Unknown]

NARRATIVE: CASE EVENT DATE: 201805
